FAERS Safety Report 8518331-2 (Version None)
Quarter: 2012Q3

REPORT INFORMATION
  Report Type: 
  Country: None (occurrence: None)
  Receive Date: 20120718
  Receipt Date: 20120130
  Transmission Date: 20120928
  Serious: No
  Sender: FDA-Public Use
  Company Number: US-BRISTOL-MYERS SQUIBB COMPANY-16374605

PATIENT
  Age: 49 Year
  Sex: Male
  Weight: 141 kg

DRUGS (7)
  1. HUMULIN R [Concomitant]
     Dosage: 1 DF= 32U. AT BED TIME
  2. GLIMEPIRIDE [Concomitant]
     Dosage: 1 DF= 2 PILLS
  3. FENOFIBRATE [Concomitant]
  4. NEURONTIN [Concomitant]
  5. COUMADIN [Suspect]
     Indication: PROTEIN S DEFICIENCY
     Dosage: STARTED 1998 OR 1999. MISSED DOSES 3-4 DOSES IN LAST 6 WKS PRESCRIPTION#: 558436
     Route: 048
  6. HUMALOG [Concomitant]
     Dosage: FORM: PEN. BEFORE MEALS
  7. LISINOPRIL [Concomitant]

REACTIONS (2)
  - WEIGHT DECREASED [None]
  - DRUG DOSE OMISSION [None]
